FAERS Safety Report 4598148-4 (Version None)
Quarter: 2005Q1

REPORT INFORMATION
  Report Type: 
  Country: None (occurrence: None)
  Receive Date: 20050204
  Receipt Date: 20040329
  Transmission Date: 20050727
  Serious: Yes (Other)
  Sender: FDA-Public Use
  Company Number: PHEH2004US02766

PATIENT
  Age: 13 Year
  Sex: Male
  Weight: 79.4 kg

DRUGS (7)
  1. CLOZARIL [Suspect]
     Indication: SCHIZOAFFECTIVE DISORDER
     Dosage: 200 MG/DAY ; 300 MG : QD, ORAL
     Route: 048
     Dates: start: 20040227, end: 20040304
  2. CLOZARIL [Suspect]
     Indication: SCHIZOAFFECTIVE DISORDER
     Dosage: 200 MG/DAY ; 300 MG : QD, ORAL
     Route: 048
     Dates: start: 20040305, end: 20040309
  3. DEPAKOTE [Concomitant]
  4. RISPERDAL [Concomitant]
  5. ATIVAN [Concomitant]
  6. ALBUTEROL [Concomitant]
  7. SEREVENT [Concomitant]

REACTIONS (2)
  - ASTHMA [None]
  - TACHYCARDIA [None]
